FAERS Safety Report 10055114 (Version 1)
Quarter: 2014Q2

REPORT INFORMATION
  Report Type: Spontaneous
  Country: US (occurrence: US)
  Receive Date: 20140402
  Receipt Date: 20140402
  Transmission Date: 20141212
  Serious: No
  Sender: FDA-Public Use
  Company Number: US-SA-2014SA014817

PATIENT
  Age: 41 Year
  Sex: Female

DRUGS (6)
  1. AUBAGIO [Suspect]
     Indication: MULTIPLE SCLEROSIS
     Route: 048
  2. KLONOPIN [Concomitant]
  3. NEURONTIN [Concomitant]
  4. AMLODIPINE/BENAZEPRIL [Concomitant]
  5. LEXAPRO [Concomitant]
  6. LORTAB [Concomitant]

REACTIONS (1)
  - Dysgeusia [Unknown]
